FAERS Safety Report 10412204 (Version 2)
Quarter: 2014Q2

REPORT INFORMATION
  Report Type: Spontaneous
  Country: US (occurrence: None)
  Receive Date: 20140604
  Receipt Date: 20140604
  Transmission Date: 20141212
  Serious: Yes (Hospitalization)
  Sender: FDA-Public Use
  Company Number: 20090701CINRY1040

PATIENT
  Age: 31 Year
  Sex: Female
  Weight: 120.2 kg

DRUGS (4)
  1. CINRYZE [Suspect]
     Indication: HEREDITARY ANGIOEDEMA
     Route: 042
     Dates: start: 20090605, end: 20090626
  2. PERCOCET [Concomitant]
  3. PRILOSEC [Concomitant]
  4. LEVBID [Concomitant]

REACTIONS (7)
  - Therapeutic response decreased [None]
  - Pharyngeal oedema [None]
  - Pyrexia [None]
  - Chills [None]
  - Asthenia [None]
  - Dizziness [None]
  - Headache [None]
